FAERS Safety Report 12610850 (Version 1)
Quarter: 2016Q3

REPORT INFORMATION
  Report Type: Spontaneous
  Country: ES (occurrence: ES)
  Receive Date: 20160801
  Receipt Date: 20160801
  Transmission Date: 20161109
  Serious: Yes (Other)
  Sender: FDA-Public Use
  Company Number: ES-WATSON-2016-16126

PATIENT
  Age: 82 Year
  Sex: Female

DRUGS (1)
  1. KENTERA [Suspect]
     Active Substance: OXYBUTYNIN
     Indication: HYPERTONIC BLADDER
     Dosage: 1 DF, ONCE EVERY 72 HOURS
     Route: 062
     Dates: start: 20150615, end: 20160615

REACTIONS (3)
  - Hallucination [Recovered/Resolved]
  - Dizziness [Recovered/Resolved]
  - Arthralgia [Recovered/Resolved]

NARRATIVE: CASE EVENT DATE: 20150701
